FAERS Safety Report 26070576 (Version 1)
Quarter: 2025Q4

REPORT INFORMATION
  Report Type: Spontaneous
  Country: US (occurrence: None)
  Receive Date: 20251120
  Receipt Date: 20251120
  Transmission Date: 20260117
  Serious: Yes (Other)
  Sender: FDA-CTU
  Company Number: None

PATIENT
  Age: 48 Year
  Sex: Male
  Weight: 192 kg

DRUGS (7)
  1. EYLEA HD [Suspect]
     Active Substance: AFLIBERCEPT
  2. METFORMIN [Concomitant]
     Active Substance: METFORMIN HYDROCHLORIDE
  3. GLIMEPRIRIDE [Concomitant]
  4. SERTRALINE [Concomitant]
     Active Substance: SERTRALINE HYDROCHLORIDE
  5. JARDIAANCE [Concomitant]
  6. GEMFIBROZIL [Concomitant]
     Active Substance: GEMFIBROZIL
  7. IBUPROFEN [Concomitant]
     Active Substance: IBUPROFEN

REACTIONS (1)
  - Cataract [None]

NARRATIVE: CASE EVENT DATE: 20251119
